FAERS Safety Report 5143559-1 (Version None)
Quarter: 2006Q4

REPORT INFORMATION
  Report Type: 
  Country: None (occurrence: None)
  Receive Date: 20061030
  Receipt Date: 20061013
  Transmission Date: 20070319
  Serious: Yes (Death)
  Sender: FDA-Public Use
  Company Number: CIP06002501

PATIENT
  Age: 36 Year
  Sex: Male

DRUGS (1)
  1. ASACOL [Suspect]

REACTIONS (7)
  - CARDIAC ARREST [None]
  - CARDIO-RESPIRATORY ARREST [None]
  - DYSPNOEA [None]
  - GASTRIC HYPOMOTILITY [None]
  - LIVER TRANSPLANT [None]
  - LIVER TRANSPLANT REJECTION [None]
  - MEDICATION RESIDUE [None]
